FAERS Safety Report 8544005-8 (Version None)
Quarter: 2012Q3

REPORT INFORMATION
  Report Type: 
  Country: None (occurrence: None)
  Receive Date: 20120727
  Receipt Date: 20120725
  Transmission Date: 20120928
  Serious: Yes (Other)
  Sender: FDA-Public Use
  Company Number: JP-PFIZER INC-2012130591

PATIENT
  Age: 79 Year
  Sex: Female
  Weight: 58 kg

DRUGS (30)
  1. EPLERENONE [Suspect]
     Indication: HYPERTENSION
     Dosage: 50 MG, DAILY
     Route: 048
     Dates: start: 20091221, end: 20120530
  2. ISOSORBIDE MONONITRATE [Concomitant]
     Indication: HYPERURICAEMIA
     Dosage: 20 MG, 2X/DAY
     Route: 048
  3. EPADEL [Concomitant]
     Indication: PERIPHERAL ARTERIAL OCCLUSIVE DISEASE
     Dosage: 1200 MG, DAILY
     Route: 048
  4. ALLOPURINOL [Concomitant]
     Dosage: 100 MG, DAILY
  5. LOPERAMIDE HYDROCHLORIDE [Concomitant]
     Dosage: 1 MG, 2X/DAY
  6. LENDORMIN [Concomitant]
     Indication: INSOMNIA
     Dosage: 0.25 MG, DAILY
     Route: 048
  7. MICARDIS [Concomitant]
     Indication: HYPERTENSION
     Dosage: 40 MG, 2X/DAY
     Route: 048
     Dates: end: 20120530
  8. ACETAMINOPHEN [Concomitant]
     Dosage: 500 MG, 3X/DAY
  9. NEO-MEDROL [Concomitant]
     Dosage: 3 G, 2X/DAY
  10. CRESTOR [Concomitant]
     Indication: HYPERLIPIDAEMIA
     Dosage: 5 MG, 1X/DAY
     Route: 048
  11. RABEPRAZOLE SODIUM [Concomitant]
     Indication: OESOPHAGITIS
     Dosage: 10 MG, DAILY
     Route: 048
  12. KETOPROFEN [Concomitant]
  13. LASIX [Concomitant]
     Indication: HYPERTENSION
     Dosage: 40 MG, 1X/DAY
     Route: 048
  14. ALBUMIN TANNATE [Concomitant]
     Dosage: 1 G, 2X/DAY
  15. AMOXICILLIN [Concomitant]
     Dosage: 750 MG, 2X/DAY
     Dates: start: 20120525
  16. HICEE [Concomitant]
     Dosage: 1 G, 3X/DAY
  17. NORVASC [Concomitant]
     Indication: HYPERTENSION
     Dosage: 10 MG, 2X/DAY
     Route: 048
  18. CARVEDILOL [Concomitant]
     Indication: HYPERTENSION
     Dosage: 5 MG, DAILY
     Route: 048
  19. NOVOLIN R [Concomitant]
  20. BASEN [Concomitant]
     Dosage: 0.2 MG, 3X/DAY
  21. CLARITHROMYCIN [Suspect]
     Indication: HELICOBACTER INFECTION
     Dosage: 400 MG, 2X/DAY
     Route: 048
     Dates: start: 20120525, end: 20120530
  22. ASPIRIN [Concomitant]
     Indication: ANGINA PECTORIS
     Dosage: 100 MG, 1X/DAY
     Route: 048
  23. PURSENNID [Concomitant]
     Indication: CONSTIPATION
     Dosage: 24 MG, DAILY
     Route: 048
  24. LAC B [Concomitant]
     Dosage: 2 G DAILY
  25. NEXIUM [Concomitant]
     Dosage: 20 MG, 2X/DAY
     Dates: start: 20120525
  26. PLETAL [Concomitant]
     Indication: PERIPHERAL ARTERIAL OCCLUSIVE DISEASE
     Dosage: 50 MG, 2X/DAY
     Route: 048
  27. RASILEZ [Concomitant]
     Indication: HYPERTENSION
     Dosage: 150 MG, 2X/DAY
     Route: 048
     Dates: end: 20120530
  28. WARFARIN [Concomitant]
     Indication: ATRIAL FIBRILLATION
     Dosage: 3 MG, 1X/DAY
     Route: 048
  29. HALCION [Concomitant]
     Indication: INSOMNIA
     Dosage: 0.125 MG, DAILY
     Route: 048
  30. NOVOLIN R [Concomitant]

REACTIONS (1)
  - RENAL FAILURE ACUTE [None]
